FAERS Safety Report 7240162-4 (Version None)
Quarter: 2011Q1

REPORT INFORMATION
  Report Type: 
  Country: None (occurrence: None)
  Receive Date: 20110124
  Receipt Date: 20110117
  Transmission Date: 20110831
  Serious: Yes (Other)
  Sender: FDA-Public Use
  Company Number: DE-JNJFOC-20110104052

PATIENT

DRUGS (1)
  1. RISPERIDONE CONSTA [Suspect]
     Indication: ILL-DEFINED DISORDER
     Route: 030

REACTIONS (1)
  - HALLUCINATION, AUDITORY [None]
